FAERS Safety Report 6128246-5 (Version None)
Quarter: 2009Q1

REPORT INFORMATION
  Report Type: 
  Country: None (occurrence: None)
  Receive Date: 20090323
  Receipt Date: 20090310
  Transmission Date: 20090719
  Serious: Yes (Other)
  Sender: FDA-Public Use
  Company Number: US-PFIZER INC-2006094841

PATIENT
  Sex: Female
  Weight: 77 kg

DRUGS (12)
  1. PROVERA [Suspect]
     Indication: HORMONE REPLACEMENT THERAPY
     Dosage: 10 MG, UNK
     Route: 048
     Dates: start: 19930101, end: 19990101
  2. PROVERA [Suspect]
     Indication: MENOPAUSAL SYMPTOMS
     Dosage: 10 MG, UNK
     Route: 048
     Dates: start: 20010101
  3. MEDROXYPROGESTERONE AND MEDROXYPROGESTERONE ACETATE [Suspect]
     Indication: HORMONE REPLACEMENT THERAPY
     Dosage: 10 MG, UNK
     Route: 065
     Dates: start: 20000101
  4. MEDROXYPROGESTERONE AND MEDROXYPROGESTERONE ACETATE [Suspect]
     Indication: MENOPAUSAL SYMPTOMS
  5. PREMARIN [Suspect]
     Indication: HORMONE REPLACEMENT THERAPY
     Dosage: UNK
     Route: 065
     Dates: start: 20000101, end: 20030101
  6. PREMARIN [Suspect]
     Indication: MENOPAUSAL SYMPTOMS
  7. ESTRACE [Suspect]
     Indication: HORMONE REPLACEMENT THERAPY
     Dosage: 0.1 MG, UNK
     Route: 065
     Dates: start: 20000101, end: 20040101
  8. ESTRACE [Suspect]
     Indication: MENOPAUSAL SYMPTOMS
  9. ESTRADIOL [Suspect]
     Indication: HORMONE REPLACEMENT THERAPY
     Dosage: 1MG-2MG
     Route: 065
     Dates: start: 20020101, end: 20040101
  10. ESTRADIOL [Suspect]
     Indication: MENOPAUSAL SYMPTOMS
     Dosage: 2 MG, UNK
     Dates: start: 20020101, end: 20040101
  11. ESTRACE [Suspect]
     Indication: HORMONE REPLACEMENT THERAPY
     Dosage: 1.0 MG, UNK
     Dates: start: 19930101, end: 20040101
  12. ESTRACE [Suspect]
     Indication: MENOPAUSAL SYMPTOMS

REACTIONS (1)
  - OVARIAN CANCER [None]
